FAERS Safety Report 12262781 (Version 2)
Quarter: 2016Q2

REPORT INFORMATION
  Report Type: Spontaneous
  Country: ES (occurrence: ES)
  Receive Date: 20160413
  Receipt Date: 20160517
  Transmission Date: 20160815
  Serious: Yes (Other)
  Sender: FDA-Public Use
  Company Number: ES-009507513-1604ESP002488

PATIENT
  Age: 71 Year
  Sex: Female

DRUGS (15)
  1. SIMVASTATIN. [Concomitant]
     Active Substance: SIMVASTATIN
     Dosage: 20 MG, 0-0-1
     Route: 048
  2. TRAMADOL HYDROCHLORIDE. [Concomitant]
     Active Substance: TRAMADOL HYDROCHLORIDE
     Dosage: 75 MG: 1-0-1
  3. LORAZEPAM. [Concomitant]
     Active Substance: LORAZEPAM
     Dosage: 0.5 MG, QD
  4. FENTANYL. [Interacting]
     Active Substance: FENTANYL
     Dosage: 50 MG/10 CM2, 1 TRANSDERMAL PATCH EVERY 72 HRS
     Route: 062
  5. ACETAMINOPHEN. [Concomitant]
     Active Substance: ACETAMINOPHEN
     Dosage: 1G: 1-1-1
  6. ACENOCOUMAROL [Concomitant]
     Active Substance: ACENOCOUMAROL
     Dosage: UNK, AS PRESCRIBED
  7. FUROSEMIDE. [Concomitant]
     Active Substance: FUROSEMIDE
     Dosage: 40 MG: 2-0-0
  8. BISOPROLOL [Concomitant]
     Active Substance: BISOPROLOL
     Dosage: 5 MG: 1-0-0
  9. SPIRONOLACTONE. [Concomitant]
     Active Substance: SPIRONOLACTONE
     Dosage: 25 MG: 1-0-0
  10. MIRTAZAPINE. [Suspect]
     Active Substance: MIRTAZAPINE
     Indication: ADJUSTMENT DISORDER WITH DEPRESSED MOOD
     Dosage: 7.5 MG, QPM
     Route: 048
  11. ENALAPRIL MALEATE. [Concomitant]
     Active Substance: ENALAPRIL MALEATE
     Dosage: 5 MG: 1-0-0
  12. MIRTAZAPINE. [Interacting]
     Active Substance: MIRTAZAPINE
     Indication: INSOMNIA
  13. FENTANYL. [Interacting]
     Active Substance: FENTANYL
     Indication: BACK PAIN
     Dosage: 25 MG/10 CM2, 1 TRANSDERMAL PATCH EVERY 72 HRS
     Route: 062
  14. DULOXETINE HYDROCHLORIDE. [Interacting]
     Active Substance: DULOXETINE HYDROCHLORIDE
     Dosage: 30 MG: 1-0-0
  15. PREGABALIN. [Concomitant]
     Active Substance: PREGABALIN
     Dosage: 75 MG: 0-0-1

REACTIONS (4)
  - Overdose [Recovering/Resolving]
  - Neurotoxicity [Recovering/Resolving]
  - Myoclonus [Recovering/Resolving]
  - Drug interaction [Recovering/Resolving]
